FAERS Safety Report 20505930 (Version 1)
Quarter: 2022Q1

REPORT INFORMATION
  Report Type: Spontaneous
  Country: CN (occurrence: CN)
  Receive Date: 20220223
  Receipt Date: 20220223
  Transmission Date: 20220423
  Serious: Yes (Hospitalization, Other)
  Sender: FDA-Public Use
  Company Number: CN-BAYER-2022A025586

PATIENT
  Age: 64 Year
  Sex: Male
  Weight: 75 kg

DRUGS (2)
  1. STIVARGA [Suspect]
     Active Substance: REGORAFENIB
     Indication: Rectal cancer
     Dosage: 160 MG, QD, TAKING FOR 21 DAYS AND STOPPING FOR 7 DAYS
     Route: 048
     Dates: start: 20220110
  2. SINTILIMAB [Suspect]
     Active Substance: SINTILIMAB
     Indication: Immune system disorder
     Dosage: 200 MG, QD
     Route: 041
     Dates: start: 20220110, end: 20220110

REACTIONS (5)
  - Metastases to central nervous system [None]
  - Hypertension [Recovering/Resolving]
  - Nausea [Recovering/Resolving]
  - Dizziness [Recovering/Resolving]
  - Vomiting [Recovering/Resolving]

NARRATIVE: CASE EVENT DATE: 20220110
